FAERS Safety Report 18515337 (Version 1)
Quarter: 2020Q4

REPORT INFORMATION
  Report Type: Spontaneous
  Country: US (occurrence: US)
  Receive Date: 20201117
  Receipt Date: 20201117
  Transmission Date: 20210114
  Serious: Yes (Other)
  Sender: FDA-Public Use
  Company Number: None

PATIENT
  Age: 59 Year
  Sex: Male
  Weight: 102.06 kg

DRUGS (9)
  1. MELOXICAM. [Suspect]
     Active Substance: MELOXICAM
  2. ATORVASTATIN [Suspect]
     Active Substance: ATORVASTATIN
  3. ABUTEROL SULFATE [Suspect]
     Active Substance: ALBUTEROL SULFATE
  4. LISINOPRIL. [Suspect]
     Active Substance: LISINOPRIL
  5. MIRTZAPINE [Concomitant]
  6. HYDROCODONE/ACETAMINOPHEN [Suspect]
     Active Substance: ACETAMINOPHEN\HYDROCODONE
     Indication: NEURALGIA
     Dosage: ?          OTHER STRENGTH:10-325;?
     Route: 048
     Dates: start: 20120312
  7. NORCO [Suspect]
     Active Substance: ACETAMINOPHEN\HYDROCODONE BITARTRATE
  8. XANAX [Suspect]
     Active Substance: ALPRAZOLAM
  9. SPIRIVA [Suspect]
     Active Substance: TIOTROPIUM BROMIDE MONOHYDRATE

REACTIONS (10)
  - Hypokinesia [None]
  - Peripheral swelling [None]
  - Weight increased [None]
  - Inadequate analgesia [None]
  - Drug ineffective [None]
  - Abdominal pain upper [None]
  - Chest pain [None]
  - Panic attack [None]
  - Tobacco user [None]
  - Behaviour disorder [None]

NARRATIVE: CASE EVENT DATE: 20191020
